FAERS Safety Report 6105664-2 (Version None)
Quarter: 2009Q1

REPORT INFORMATION
  Report Type: 
  Country: None (occurrence: None)
  Receive Date: 20090304
  Receipt Date: 20090304
  Transmission Date: 20090719
  Serious: Yes (Life-Threatening)
  Sender: FDA-Public Use
  Company Number: None

PATIENT
  Age: 65 Year
  Sex: Female
  Weight: 63 kg

DRUGS (2)
  1. LYMPHAZURIN [Suspect]
     Indication: BIOPSY LYMPH GLAND
     Dosage: 0.5 CC INJECTED THREE TIMES SC
     Route: 058
     Dates: start: 20080226
  2. ANCEF [Concomitant]

REACTIONS (4)
  - HYPOTENSION [None]
  - NO THERAPEUTIC RESPONSE [None]
  - TACHYCARDIA [None]
  - URTICARIA [None]
